FAERS Safety Report 9277000 (Version 1)
Quarter: 2013Q2

REPORT INFORMATION
  Report Type: Spontaneous
  Country: US (occurrence: US)
  Receive Date: 20130507
  Receipt Date: 20130507
  Transmission Date: 20140414
  Serious: Yes (Other)
  Sender: FDA-Public Use
  Company Number: CHPA2012US026488

PATIENT
  Age: 57 Year
  Sex: Female

DRUGS (4)
  1. THERAFLU UNKNOWN [Suspect]
     Indication: NASOPHARYNGITIS
     Dosage: UNK, PRN
     Route: 048
  2. THERAFLU NIGHTTIME SEVERE COLD + COUGH [Suspect]
     Indication: NASOPHARYNGITIS
     Dosage: UNK, PRN
     Route: 048
     Dates: start: 2002
  3. ELAVIL [Concomitant]
  4. ROBITUSSIN ^ROBINS^ [Concomitant]

REACTIONS (4)
  - Thyroid disorder [Not Recovered/Not Resolved]
  - Palpitations [Recovered/Resolved]
  - Tremor [Recovered/Resolved]
  - Nausea [Recovered/Resolved]
